FAERS Safety Report 9765031 (Version 3)
Quarter: 2014Q1

REPORT INFORMATION
  Report Type: Spontaneous
  Country: HU (occurrence: HU)
  Receive Date: 20131217
  Receipt Date: 20140107
  Transmission Date: 20141002
  Serious: Yes (Other)
  Sender: FDA-Public Use
  Company Number: HU-JNJFOC-20131206595

PATIENT
  Age: 19 Year
  Sex: Female
  Weight: 53 kg

DRUGS (5)
  1. REMICADE [Suspect]
     Indication: COLITIS ULCERATIVE
     Dosage: STRENGTH: 100 MG
     Route: 042
     Dates: start: 20120126, end: 20120307
  2. AZATHIOPRINE [Suspect]
     Indication: COLITIS ULCERATIVE
     Route: 065
  3. STEROIDS NOS [Suspect]
     Indication: COLITIS ULCERATIVE
     Route: 065
  4. PENTASA [Concomitant]
     Dosage: 2 TIMES 1 GRAM
     Route: 065
     Dates: start: 201112
  5. IMURAN [Concomitant]
     Route: 065
     Dates: start: 201112

REACTIONS (4)
  - Papilloma viral infection [Not Recovered/Not Resolved]
  - Cervical dysplasia [Not Recovered/Not Resolved]
  - Exposure during pregnancy [Recovered/Resolved]
  - Abortion [Unknown]
